FAERS Safety Report 8810111 (Version 1)
Quarter: 2012Q4

REPORT INFORMATION
  Report Type: 
  Country: BR (occurrence: BR)
  Receive Date: 20120926
  Receipt Date: 20120926
  Transmission Date: 20130627
  Serious: Yes (Hospitalization)
  Sender: FDA-Public Use
  Company Number: BR-ASTRAZENECA-2012SE72951

PATIENT
  Age: 4 Year
  Sex: Male

DRUGS (2)
  1. LOSEC [Suspect]
     Indication: GASTRITIS HAEMORRHAGIC
     Route: 048
     Dates: start: 2012
  2. LOSEC [Suspect]
     Indication: GASTROOESOPHAGEAL REFLUX DISEASE
     Route: 048
     Dates: start: 2012

REACTIONS (2)
  - Laryngitis [Recovered/Resolved]
  - Off label use [Not Recovered/Not Resolved]
